FAERS Safety Report 6085410-1 (Version None)
Quarter: 2009Q1

REPORT INFORMATION
  Report Type: 
  Country: None (occurrence: None)
  Receive Date: 20090217
  Receipt Date: 20090114
  Transmission Date: 20090719
  Serious: Yes (Hospitalization)
  Sender: FDA-Public Use
  Company Number: 2008BH012989

PATIENT
  Age: 47 Year
  Sex: Male
  Weight: 70 kg

DRUGS (14)
  1. EXTRANEAL [Suspect]
     Indication: PERITONEAL DIALYSIS
     Dosage: IP
     Route: 033
     Dates: start: 20080721, end: 20081124
  2. DIANEAL [Suspect]
     Indication: PERITONEAL DIALYSIS
     Dosage: IP
     Route: 033
  3. DIANEAL PD-2 W/ DEXTROSE 1.5% [Suspect]
     Indication: PERITONEAL DIALYSIS
     Dosage: IP
     Route: 033
  4. DIANEAL [Concomitant]
  5. METOPROLOL SUCCINATE [Concomitant]
  6. DIGOXIN [Concomitant]
  7. COENZYME Q10 [Concomitant]
  8. L-CARNITINE [Concomitant]
  9. VITAMIN D [Concomitant]
  10. EPOGEN [Concomitant]
  11. COUMADIN [Concomitant]
  12. TUMS [Concomitant]
  13. PHOSLO [Concomitant]
  14. FOSRENOL [Concomitant]

REACTIONS (4)
  - ABDOMINAL PAIN [None]
  - CATHETER RELATED COMPLICATION [None]
  - PERITONEAL DIALYSIS COMPLICATION [None]
  - PERITONITIS [None]
